FAERS Safety Report 12100963 (Version 1)
Quarter: 2016Q1

REPORT INFORMATION
  Report Type: Spontaneous
  Country: US (occurrence: US)
  Receive Date: 20160222
  Receipt Date: 20160222
  Transmission Date: 20160526
  Serious: Yes (Other)
  Sender: FDA-Public Use
  Company Number: US-BAXALTA-2016BLT000871

PATIENT
  Age: 15 Year
  Sex: Male

DRUGS (1)
  1. RECOMBINATE [Suspect]
     Active Substance: ANTIHEMOPHILIC FACTOR, HUMAN RECOMBINANT
     Indication: FACTOR VIII DEFICIENCY
     Dosage: 2500 IU, EVERY OTHER DAY
     Route: 042

REACTIONS (4)
  - Haemorrhage [Unknown]
  - Discomfort [Unknown]
  - Pain [Unknown]
  - Swelling [Unknown]
